FAERS Safety Report 9640876 (Version 1)
Quarter: 2013Q4

REPORT INFORMATION
  Report Type: Spontaneous
  Country: US (occurrence: US)
  Receive Date: 20131023
  Receipt Date: 20131023
  Transmission Date: 20140711
  Serious: No
  Sender: FDA-Public Use
  Company Number: US-ABBVIE-13P-163-1127189-00

PATIENT
  Age: 43 Year
  Sex: Female
  Weight: 108.96 kg

DRUGS (2)
  1. LUPRON DEPOT [Suspect]
     Indication: ENDOMETRIOSIS
     Dosage: TWO INJECTIONS RECEIVED
     Route: 030
     Dates: start: 201304, end: 201305
  2. LUPRON DEPOT [Suspect]
     Indication: ENDOMETRIOSIS
     Dosage: TWO INJECTIONS RECEIVED
     Route: 050
     Dates: start: 20130617

REACTIONS (3)
  - Pain [Not Recovered/Not Resolved]
  - Vaginal haemorrhage [Not Recovered/Not Resolved]
  - Thrombosis [Not Recovered/Not Resolved]
